FAERS Safety Report 19473161 (Version 2)
Quarter: 2021Q3

REPORT INFORMATION
  Report Type: Report from Study
  Country: US (occurrence: US)
  Receive Date: 20210629
  Receipt Date: 20210823
  Transmission Date: 20211014
  Serious: Yes (Other)
  Sender: FDA-Public Use
  Company Number: NVSC2021US139474

PATIENT
  Sex: Female

DRUGS (2)
  1. GILENYA [Suspect]
     Active Substance: FINGOLIMOD HYDROCHLORIDE
     Dosage: 0.5 MG, QOD (FOR LAST 4 YEARS)
     Route: 048
  2. GILENYA [Suspect]
     Active Substance: FINGOLIMOD HYDROCHLORIDE
     Indication: MULTIPLE SCLEROSIS
     Dosage: 0.5 MG, QD (FOR FIRST 6 YEARS)
     Route: 048

REACTIONS (10)
  - Multiple sclerosis [Unknown]
  - Red blood cell count decreased [Unknown]
  - White blood cell count decreased [Unknown]
  - Anaemia [Unknown]
  - Lymphoma [Unknown]
  - Lymphocyte count decreased [Unknown]
  - Product use issue [Unknown]
  - Plasma cell myeloma [Unknown]
  - Leukaemia [Unknown]
  - Haematocrit decreased [Unknown]
